FAERS Safety Report 4334313-9 (Version None)
Quarter: 2004Q2

REPORT INFORMATION
  Report Type: 
  Country: None (occurrence: None)
  Receive Date: 20040405
  Receipt Date: 20040324
  Transmission Date: 20050107
  Serious: Yes (Hospitalization)
  Sender: FDA-Public Use
  Company Number: WAES 0207USA02040

PATIENT
  Age: 69 Year
  Sex: Male

DRUGS (10)
  1. INDOCIN [Suspect]
     Indication: GOUT
     Dosage: 150 MG/DAILY/PO
     Route: 048
     Dates: start: 20020501, end: 20020513
  2. CLARITIN [Concomitant]
  3. LASIX [Concomitant]
  4. PRINIVIL [Concomitant]
  5. ALLOPURINOL [Concomitant]
  6. ASPIRIN [Concomitant]
  7. ATORVASTATIN CALCIUM [Concomitant]
  8. GATIFLOXACIN [Concomitant]
  9. METOPROLOL [Concomitant]
  10. POTASSIUM CHLORIDE [Concomitant]

REACTIONS (3)
  - HAEMATURIA [None]
  - HAEMOGLOBIN DECREASED [None]
  - URINARY RETENTION [None]
